FAERS Safety Report 9320347 (Version 1)
Quarter: 2013Q2

REPORT INFORMATION
  Report Type: Spontaneous
  Country: US (occurrence: US)
  Receive Date: 20130530
  Receipt Date: 20130530
  Transmission Date: 20140414
  Serious: Yes (Other)
  Sender: FDA-Public Use
  Company Number: US-ELI_LILLY_AND_COMPANY-US201304001079

PATIENT
  Sex: Female
  Weight: 20.5 kg

DRUGS (1)
  1. HUMATROPE [Suspect]
     Indication: BODY HEIGHT BELOW NORMAL
     Dosage: UNK
     Dates: start: 2005, end: 20070315

REACTIONS (1)
  - Renal failure chronic [Recovered/Resolved]
